FAERS Safety Report 5621044-8 (Version None)
Quarter: 2008Q1

REPORT INFORMATION
  Report Type: 
  Country: None (occurrence: None)
  Receive Date: 20080208
  Receipt Date: 20080130
  Transmission Date: 20080703
  Serious: Yes (Death)
  Sender: FDA-Public Use
  Company Number: DE-PFIZER INC-2008010310

PATIENT
  Sex: Female
  Weight: 85 kg

DRUGS (4)
  1. EPIRUBICIN HYDROCHLORIDE [Suspect]
     Indication: BREAST CANCER
     Dosage: DAILY DOSE:175MG
     Route: 042
  2. EPIRUBICIN HYDROCHLORIDE [Suspect]
     Dosage: DAILY DOSE:173MG
     Route: 042
  3. EPIRUBICIN HYDROCHLORIDE [Suspect]
     Dosage: DAILY DOSE:174MG
     Route: 042
  4. EPIRUBICIN HYDROCHLORIDE [Suspect]
     Dosage: DAILY DOSE:172MG
     Route: 042
     Dates: start: 20010315, end: 20010315

REACTIONS (1)
  - DEATH [None]
